FAERS Safety Report 11251905 (Version 2)
Quarter: 2015Q3

REPORT INFORMATION
  Report Type: Spontaneous
  Country: US (occurrence: US)
  Receive Date: 20150708
  Receipt Date: 20150803
  Transmission Date: 20151125
  Serious: No
  Sender: FDA-Public Use
  Company Number: US-ELI_LILLY_AND_COMPANY-US201202007462

PATIENT
  Sex: Male

DRUGS (5)
  1. SOMA [Concomitant]
     Active Substance: CARISOPRODOL
  2. ZYPREXA RELPREVV [Suspect]
     Active Substance: OLANZAPINE PAMOATE
     Indication: PSYCHOTIC DISORDER
     Dosage: 300 MG, UNK
  3. NORCO [Concomitant]
     Active Substance: ACETAMINOPHEN\HYDROCODONE BITARTRATE
  4. TRAMADOL. [Concomitant]
     Active Substance: TRAMADOL
  5. VICODIN [Concomitant]
     Active Substance: ACETAMINOPHEN\HYDROCODONE BITARTRATE

REACTIONS (2)
  - Drug dose omission [Recovered/Resolved]
  - Sedation [Recovered/Resolved]
